FAERS Safety Report 9298642 (Version 2)
Quarter: 2013Q2

REPORT INFORMATION
  Report Type: Report from Study
  Country: JP (occurrence: JP)
  Receive Date: 20130520
  Receipt Date: 20130604
  Transmission Date: 20140414
  Serious: Yes (Life-Threatening)
  Sender: FDA-Public Use
  Company Number: JP-PFIZER INC-2013150767

PATIENT
  Age: 40 Year
  Sex: Female

DRUGS (1)
  1. RANDA [Suspect]
     Indication: CERVIX CARCINOMA
     Dosage: 5 MG/M2 WITH 500 ML SODIUM CHLORIDE SOLUTION (IN 2 HOURS INFUSION)
     Route: 042

REACTIONS (1)
  - Intestinal perforation [Unknown]
